FAERS Safety Report 6681618-2 (Version None)
Quarter: 2010Q2

REPORT INFORMATION
  Report Type: 
  Country: None (occurrence: None)
  Receive Date: 20100413
  Receipt Date: 20100413
  Transmission Date: 20101027
  Serious: Yes (Hospitalization, Disabling)
  Sender: FDA-Public Use
  Company Number: None

PATIENT
  Age: 65 Year
  Sex: Male

DRUGS (2)
  1. COUMADIN [Suspect]
  2. LOVENOX [Suspect]
     Dosage: 1MG/KG SQ Q12 HOURS
     Route: 058

REACTIONS (2)
  - CAUDA EQUINA SYNDROME [None]
  - POST PROCEDURAL HAEMATOMA [None]
